FAERS Safety Report 20671100 (Version 1)
Quarter: 2022Q2

REPORT INFORMATION
  Report Type: Spontaneous
  Country: US (occurrence: US)
  Receive Date: 20220404
  Receipt Date: 20220404
  Transmission Date: 20220720
  Serious: No
  Sender: FDA-Public Use
  Company Number: US-SA-SAC20220401000517

PATIENT
  Age: 56 Year
  Sex: Male

DRUGS (15)
  1. DUPIXENT [Suspect]
     Active Substance: DUPILUMAB
     Indication: Asthma
     Dosage: 200 MG, QOW
     Route: 058
  2. ADVAIR HFA [Concomitant]
     Active Substance: FLUTICASONE PROPIONATE\SALMETEROL XINAFOATE
     Dosage: UNK
  3. BENZONATATE [Concomitant]
     Active Substance: BENZONATATE
     Dosage: UNK
  4. DALIRESP [Concomitant]
     Active Substance: ROFLUMILAST
     Dosage: UNK
  5. IPRATROPIUM [Concomitant]
     Active Substance: IPRATROPIUM
     Dosage: UNK
  6. PROTONIX [Concomitant]
     Active Substance: PANTOPRAZOLE SODIUM
  7. SPIRIVA [Concomitant]
     Active Substance: TIOTROPIUM BROMIDE MONOHYDRATE
     Dosage: UNK
  8. TRAZODONE [Concomitant]
     Active Substance: TRAZODONE HYDROCHLORIDE
  9. ZOFRAN [Concomitant]
     Active Substance: ONDANSETRON HYDROCHLORIDE
     Dosage: UNK
  10. ALBUTEROL [Concomitant]
     Active Substance: ALBUTEROL
  11. FLUTICASONE [Concomitant]
     Active Substance: FLUTICASONE
     Dosage: UNK
  12. MONTELUKAST [Concomitant]
     Active Substance: MONTELUKAST SODIUM
     Dosage: UNK
  13. PREDNISONE [Concomitant]
     Active Substance: PREDNISONE
     Dosage: UNK
  14. METHOCARBAMOL [Concomitant]
     Active Substance: METHOCARBAMOL
     Dosage: UNK
  15. CYCLOBENZAPRINE [Concomitant]
     Active Substance: CYCLOBENZAPRINE

REACTIONS (1)
  - Product dose omission issue [Unknown]
